FAERS Safety Report 8201705-7 (Version None)
Quarter: 2012Q1

REPORT INFORMATION
  Report Type: 
  Country: None (occurrence: None)
  Receive Date: 20120312
  Receipt Date: 20120229
  Transmission Date: 20120608
  Serious: Yes (Other)
  Sender: FDA-Public Use
  Company Number: JP-PFIZER INC-2012033704

PATIENT
  Age: 48 Year
  Sex: Female

DRUGS (1)
  1. PROVERA [Suspect]

REACTIONS (1)
  - CEREBRAL INFARCTION [None]
